FAERS Safety Report 20616095 (Version 2)
Quarter: 2022Q1

REPORT INFORMATION
  Report Type: Report from Study
  Country: US (occurrence: US)
  Receive Date: 20220321
  Receipt Date: 20220325
  Transmission Date: 20220423
  Serious: Yes (Death, Other)
  Sender: FDA-Public Use
  Company Number: US-GLAXOSMITHKLINE-US2021226633

PATIENT
  Age: 56 Year
  Sex: Female

DRUGS (3)
  1. NIRAPARIB [Suspect]
     Active Substance: NIRAPARIB
     Indication: Ovarian cancer
     Dosage: UNK (ALTERNATING 200MG/100MG PM)
     Route: 048
     Dates: start: 20211020
  2. NIRAPARIB [Suspect]
     Active Substance: NIRAPARIB
     Dosage: UNK (ALTERNATING 200 MG/ 100 MG QOD PM)
     Route: 048
  3. NIRAPARIB [Suspect]
     Active Substance: NIRAPARIB
     Dosage: 200 MG, QD
     Route: 048
     Dates: end: 20220316

REACTIONS (4)
  - Death [Fatal]
  - Malignant neoplasm progression [Not Recovered/Not Resolved]
  - Decreased activity [Unknown]
  - Off label use [Not Recovered/Not Resolved]

NARRATIVE: CASE EVENT DATE: 20211020
